FAERS Safety Report 7662239-1 (Version None)
Quarter: 2011Q3

REPORT INFORMATION
  Report Type: 
  Country: None (occurrence: None)
  Receive Date: 20110805
  Receipt Date: 20101220
  Transmission Date: 20111222
  Serious: No
  Sender: FDA-Public Use
  Company Number: US-ABBOTT-10P-163-0693362-00

PATIENT
  Sex: Male
  Weight: 90.8 kg

DRUGS (12)
  1. SINGULAIR [Concomitant]
     Indication: LUNG DISORDER
  2. FISH OIL [Concomitant]
     Indication: SUPPLEMENTATION THERAPY
  3. ADVAIR DISKUS 100/50 [Concomitant]
     Indication: LUNG DISORDER
  4. PROAIR HFA [Concomitant]
     Indication: LUNG DISORDER
  5. FLONASE [Concomitant]
     Indication: LUNG DISORDER
  6. VERAPAMIL [Concomitant]
     Indication: HYPERTENSION
  7. MULTI-VITAMIN [Concomitant]
     Indication: VITAMIN SUPPLEMENTATION
  8. NAPROXEN [Concomitant]
     Indication: ARTHRALGIA
  9. ASPIRIN [Concomitant]
     Indication: PRODUCT USED FOR UNKNOWN INDICATION
  10. PRAVASTATIN [Concomitant]
     Indication: BLOOD CHOLESTEROL INCREASED
  11. LISINOPRIL [Concomitant]
     Indication: HYPERTENSION
  12. NIASPAN [Suspect]
     Indication: HYPERLIPIDAEMIA
     Dosage: AT ABOUT 1:30PM AFTER DINNER

REACTIONS (7)
  - FLUSHING [None]
  - SKIN BURNING SENSATION [None]
  - ANXIETY [None]
  - PRURITUS [None]
  - ERYTHEMA [None]
  - PARAESTHESIA [None]
  - PULSE PRESSURE INCREASED [None]
